FAERS Safety Report 19597661 (Version 3)
Quarter: 2022Q3

REPORT INFORMATION
  Report Type: Report from Study
  Country: CA (occurrence: CA)
  Receive Date: 20210722
  Receipt Date: 20220727
  Transmission Date: 20221027
  Serious: Yes (Hospitalization)
  Sender: FDA-Public Use
  Company Number: CA-CATALYST PHARMACEUTICALS, INC-2021CAT00338

PATIENT
  Sex: Female

DRUGS (2)
  1. FIRDAPSE [Suspect]
     Active Substance: AMIFAMPRIDINE PHOSPHATE
     Indication: Myasthenic syndrome
     Dosage: 80 MG DAILY
     Route: 048
     Dates: start: 20210622
  2. FIRDAPSE [Suspect]
     Active Substance: AMIFAMPRIDINE PHOSPHATE
     Dosage: 80 MG DAILY
     Route: 048
     Dates: start: 20220331, end: 2022

REACTIONS (4)
  - Hospitalisation [Unknown]
  - Feeling hot [Unknown]
  - Nausea [Unknown]
  - Dizziness [Unknown]
